FAERS Safety Report 11613828 (Version 3)
Quarter: 2015Q4

REPORT INFORMATION
  Report Type: Spontaneous
  Country: JP (occurrence: JP)
  Receive Date: 20151008
  Receipt Date: 20151224
  Transmission Date: 20160304
  Serious: Yes (Death, Hospitalization)
  Sender: FDA-Public Use
  Company Number: JP-JNJFOC-20151004423

PATIENT
  Age: 102 Year
  Sex: Male

DRUGS (6)
  1. XARELTO [Suspect]
     Active Substance: RIVAROXABAN
     Indication: ARRHYTHMIA PROPHYLAXIS
     Route: 048
     Dates: start: 20131001, end: 20150813
  2. LANSOPRAZOLE. [Concomitant]
     Active Substance: LANSOPRAZOLE
     Indication: GASTRIC ULCER
     Route: 048
     Dates: start: 20130801, end: 20151105
  3. PREDNISOLONE. [Concomitant]
     Active Substance: PREDNISOLONE
     Route: 065
  4. DEPAS [Concomitant]
     Active Substance: ETIZOLAM
     Route: 048
     Dates: start: 20130801, end: 20150813
  5. YOKUKANSAN [Suspect]
     Active Substance: HERBALS
     Indication: DEMENTIA
     Route: 048
     Dates: start: 20150801, end: 20150813
  6. XARELTO [Suspect]
     Active Substance: RIVAROXABAN
     Indication: CEREBROVASCULAR ACCIDENT PROPHYLAXIS
     Route: 048
     Dates: start: 20131001, end: 20150813

REACTIONS (1)
  - Interstitial lung disease [Fatal]

NARRATIVE: CASE EVENT DATE: 20150813
